FAERS Safety Report 23466231 (Version 1)
Quarter: 2024Q1

REPORT INFORMATION
  Report Type: Spontaneous
  Country: US (occurrence: None)
  Receive Date: 20240131
  Receipt Date: 20240131
  Transmission Date: 20240410
  Serious: Yes (Disabling)
  Sender: FDA-Public Use
  Company Number: None

PATIENT
  Age: 28 Year
  Sex: Male
  Weight: 70.2 kg

DRUGS (2)
  1. LEVOFLOXACIN [Suspect]
     Active Substance: LEVOFLOXACIN
     Indication: Paranasal cyst
     Dosage: OTHER QUANTITY : 28 TABLET(S);?
     Route: 048
     Dates: start: 20231220, end: 20231220
  2. FLUTICASONE [Concomitant]
     Active Substance: FLUTICASONE

REACTIONS (21)
  - Dizziness [None]
  - Anxiety [None]
  - Fear [None]
  - Anxiety [None]
  - Paranoia [None]
  - Hallucinations, mixed [None]
  - Suicidal ideation [None]
  - Restlessness [None]
  - Insomnia [None]
  - Tachyphrenia [None]
  - Heart rate increased [None]
  - Emotional disorder [None]
  - Paraesthesia [None]
  - Feeling cold [None]
  - Tinnitus [None]
  - Insomnia [None]
  - Nightmare [None]
  - Somnolence [None]
  - Night sweats [None]
  - Rash [None]
  - Dyspnoea [None]

NARRATIVE: CASE EVENT DATE: 20231220
